FAERS Safety Report 18768427 (Version 11)
Quarter: 2025Q1

REPORT INFORMATION
  Report Type: Report from Study
  Country: US (occurrence: US)
  Receive Date: 20210121
  Receipt Date: 20250210
  Transmission Date: 20250409
  Serious: Yes (Other)
  Sender: TAKEDA
  Company Number: US-SHIRE-US202030458

PATIENT
  Age: 10 Year
  Sex: Male

DRUGS (1)
  1. HUMAN IMMUNOGLOBULIN G\HYALURONIDASE RECOMBINANT HUMAN [Suspect]
     Active Substance: HUMAN IMMUNOGLOBULIN G\HYALURONIDASE (HUMAN RECOMBINANT)
     Indication: Primary immunodeficiency syndrome

REACTIONS (29)
  - Haematochezia [Unknown]
  - Viral infection [Unknown]
  - Illness [Unknown]
  - Haemoglobin increased [Unknown]
  - Scoliosis [Unknown]
  - Palmar erythema [Unknown]
  - Weight gain poor [Unknown]
  - Hearing aid user [Unknown]
  - Weight increased [Unknown]
  - Nasopharyngitis [Unknown]
  - Influenza [Unknown]
  - Complication associated with device [Unknown]
  - Post procedural complication [Unknown]
  - Platelet count decreased [Unknown]
  - Flushing [Unknown]
  - Gastrointestinal inflammation [Unknown]
  - Disturbance in attention [Unknown]
  - Ear infection [Unknown]
  - Aortic dilatation [Unknown]
  - Off label use [Unknown]
  - Pain [Unknown]
  - COVID-19 [Unknown]
  - Respiratory syncytial virus infection [Unknown]
  - Cough [Unknown]
  - Conjunctivitis [Unknown]
  - Pain in extremity [Unknown]
  - Swelling [Unknown]
  - Vomiting [Unknown]
  - Headache [Unknown]

NARRATIVE: CASE EVENT DATE: 20250205
